FAERS Safety Report 4959591-4 (Version None)
Quarter: 2006Q1

REPORT INFORMATION
  Report Type: 
  Country: None (occurrence: None)
  Receive Date: 20060324
  Receipt Date: 20060209
  Transmission Date: 20060701
  Serious: Yes (Other)
  Sender: FDA-Public Use
  Company Number: TRP_0238_2005

PATIENT
  Age: 51 Year
  Sex: Male
  Weight: 70.3075 kg

DRUGS (10)
  1. RIBASPHERE [Suspect]
     Indication: HEPATITIS C
     Dosage: 800 MG QDAY PO
     Route: 048
     Dates: start: 20050111, end: 20051206
  2. PEG-INTRON [Suspect]
     Indication: HEPATITIS C
     Dosage: 96 MCG QWK SC
     Route: 058
     Dates: start: 20050111, end: 20051206
  3. RESTORIL [Concomitant]
  4. SUSTIVA [Concomitant]
  5. TRUVADA [Concomitant]
  6. LOPID [Concomitant]
  7. MOTRIN [Concomitant]
  8. OMACOR [Concomitant]
  9. PROMID [Concomitant]
  10. SEROQUEL [Concomitant]

REACTIONS (20)
  - ANGER [None]
  - ANXIETY [None]
  - ASTHENIA [None]
  - BURNING SENSATION [None]
  - CRYING [None]
  - DEPRESSION [None]
  - FATIGUE [None]
  - FEAR [None]
  - HEADACHE [None]
  - INFLUENZA LIKE ILLNESS [None]
  - MARITAL PROBLEM [None]
  - NERVOUSNESS [None]
  - PAIN [None]
  - PARANOIA [None]
  - PHYSICAL ASSAULT [None]
  - POST PROCEDURAL COMPLICATION [None]
  - PSYCHOTIC DISORDER [None]
  - PYREXIA [None]
  - SELF-INJURIOUS IDEATION [None]
  - VASODILATATION [None]
